FAERS Safety Report 25264533 (Version 2)
Quarter: 2025Q3

REPORT INFORMATION
  Report Type: Report from Study
  Country: US (occurrence: US)
  Receive Date: 20250502
  Receipt Date: 20250728
  Transmission Date: 20251020
  Serious: Yes (Other)
  Sender: ABBVIE
  Company Number: US-ABBVIE-6254257

PATIENT
  Sex: Male

DRUGS (2)
  1. HUMIRA [Suspect]
     Active Substance: ADALIMUMAB
     Indication: Psoriatic arthropathy
     Route: 058
     Dates: start: 20190418
  2. OZEMPIC [Suspect]
     Active Substance: SEMAGLUTIDE
     Indication: Product used for unknown indication
     Route: 065

REACTIONS (5)
  - Intervertebral disc protrusion [Recovered/Resolved]
  - Diabetes mellitus [Not Recovered/Not Resolved]
  - Nerve compression [Unknown]
  - Psoriatic arthropathy [Recovering/Resolving]
  - Therapeutic product effect incomplete [Recovering/Resolving]
